FAERS Safety Report 16097272 (Version 3)
Quarter: 2019Q2

REPORT INFORMATION
  Report Type: Spontaneous
  Country: US (occurrence: US)
  Receive Date: 20190320
  Receipt Date: 20190429
  Transmission Date: 20190711
  Serious: Yes (Death, Other)
  Sender: FDA-Public Use
  Company Number: US-GLAXOSMITHKLINE-US2019GSK048886

PATIENT
  Age: 52 Year
  Sex: Male

DRUGS (3)
  1. COREG CR [Suspect]
     Active Substance: CARVEDILOL PHOSPHATE
     Dosage: 20 UNK, UNK
  2. COREG CR [Suspect]
     Active Substance: CARVEDILOL PHOSPHATE
     Indication: PRODUCT USED FOR UNKNOWN INDICATION
     Dosage: 20 MG, UNK
     Dates: start: 20180425
  3. COREG CR [Suspect]
     Active Substance: CARVEDILOL PHOSPHATE
     Dosage: 40 MG, UNK

REACTIONS (7)
  - Major depression [Unknown]
  - Diabetes mellitus [Unknown]
  - Death [Fatal]
  - Obesity [Unknown]
  - Hypertension [Unknown]
  - Hypothyroidism [Unknown]
  - Cellulitis [Unknown]

NARRATIVE: CASE EVENT DATE: 20180918
